FAERS Safety Report 5061701-8 (Version None)
Quarter: 2006Q3

REPORT INFORMATION
  Report Type: 
  Country: None (occurrence: None)
  Receive Date: 20060703
  Receipt Date: 20060103
  Transmission Date: 20061208
  Serious: No
  Sender: FDA-Public Use
  Company Number: 2006S1000094

PATIENT
  Age: 26 Year
  Sex: Female

DRUGS (8)
  1. CLOZAPINE [Suspect]
     Indication: DRUG USE FOR UNKNOWN INDICATION
     Dosage: SEE IMAGE
     Route: 048
     Dates: start: 20050620
  2. CLOZAPINE [Suspect]
     Indication: DRUG USE FOR UNKNOWN INDICATION
     Dosage: SEE IMAGE
     Route: 048
     Dates: start: 20050620
  3. CLOZAPINE [Suspect]
     Indication: DRUG USE FOR UNKNOWN INDICATION
     Dosage: SEE IMAGE
     Route: 048
     Dates: start: 20050620
  4. ESCITALOPRAM [Concomitant]
  5. BUPROPION HCL [Concomitant]
  6. CLONAZEPAM [Concomitant]
  7. FISH OIL [Concomitant]
  8. AMANTADINE HCL [Concomitant]

REACTIONS (1)
  - GRANULOCYTOPENIA [None]
